FAERS Safety Report 6415780-3 (Version None)
Quarter: 2009Q4

REPORT INFORMATION
  Report Type: 
  Country: None (occurrence: None)
  Receive Date: 20091021
  Receipt Date: 20091016
  Transmission Date: 20100525
  Serious: Yes (Other)
  Sender: FDA-Public Use
  Company Number: A0812123A

PATIENT
  Age: 25 Year
  Sex: Female

DRUGS (1)
  1. UREA PEROXIDE [Suspect]
     Dosage: AURAL
     Dates: start: 20091015

REACTIONS (2)
  - EAR DISCOMFORT [None]
  - HEARING IMPAIRED [None]
